FAERS Safety Report 8297078-4 (Version None)
Quarter: 2012Q2

REPORT INFORMATION
  Report Type: 
  Country: None (occurrence: None)
  Receive Date: 20120416
  Receipt Date: 20120410
  Transmission Date: 20120825
  Serious: No
  Sender: FDA-Public Use
  Company Number: 2012SP018443

PATIENT
  Age: 70 Year
  Sex: Male
  Weight: 86.4 kg

DRUGS (30)
  1. HUMULIN R [Concomitant]
  2. DEBROX [Concomitant]
  3. COLACE [Concomitant]
  4. TYLENOL (CAPLET) [Concomitant]
  5. CALCIUM GLUCONATE [Concomitant]
  6. SIMVASTATIN [Concomitant]
  7. OMEPRAZOLE [Concomitant]
  8. ACETYLSALICYLIC ACID SRT [Concomitant]
  9. ALLOPURINOL [Concomitant]
  10. PERIDEX [Concomitant]
  11. NYSTATIN [Concomitant]
  12. HYDROCHLOROTHIAZIDE [Concomitant]
  13. LIDOCAINE [Concomitant]
  14. POSACONAZOLE [Suspect]
     Indication: ANTIFUNGAL PROPHYLAXIS
     Dosage: 300 MG;BID;IV
     Route: 042
     Dates: start: 20120327, end: 20120401
  15. PROCHLORPERAZINE [Concomitant]
  16. TRAZODONE HCL [Concomitant]
  17. POSACONAZOLE [Suspect]
     Indication: ANTIFUNGAL PROPHYLAXIS
     Dosage: 200 MG;TID;PO
     Route: 048
     Dates: start: 20120402, end: 20120405
  18. SENNA [Concomitant]
  19. DEMEROL [Concomitant]
  20. CYTARABINE [Concomitant]
  21. VANCOMYCIN [Concomitant]
  22. CEFTAZIDIME [Concomitant]
  23. OXYCODONE HCL [Concomitant]
  24. LASIX [Concomitant]
  25. DAUNORUBICIN HCL [Concomitant]
  26. DUONEB [Concomitant]
  27. ONDANSETRON [Concomitant]
  28. READI-CAT [Concomitant]
  29. IMODIUM [Concomitant]
  30. MICAFUNGIN [Concomitant]

REACTIONS (9)
  - CHOLELITHIASIS [None]
  - CHOLESTASIS [None]
  - FLUID OVERLOAD [None]
  - PYREXIA [None]
  - HEPATIC STEATOSIS [None]
  - THROMBOCYTOPENIA [None]
  - MUSCLE STRAIN [None]
  - DIARRHOEA [None]
  - BILIARY DILATATION [None]
